FAERS Safety Report 14645020 (Version 2)
Quarter: 2018Q4

REPORT INFORMATION
  Report Type: Spontaneous
  Country: FR (occurrence: FR)
  Receive Date: 20180315
  Receipt Date: 20181023
  Transmission Date: 20190204
  Serious: Yes (Other)
  Sender: FDA-Public Use
  Company Number: FR-MERCK KGAA-2043870

PATIENT
  Sex: Female

DRUGS (2)
  1. EUTHYROX [Suspect]
     Active Substance: LEVOTHYROXINE SODIUM
     Indication: POST PROCEDURAL HYPOTHYROIDISM
     Dates: start: 20170620
  2. LEVOTHYROX NF [Suspect]
     Active Substance: LEVOTHYROXINE SODIUM
     Dates: start: 20170620

REACTIONS (10)
  - Suicidal ideation [None]
  - Alopecia [None]
  - Impaired work ability [None]
  - Amnesia [None]
  - Loss of personal independence in daily activities [None]
  - Feeling abnormal [None]
  - Asthenia [None]
  - Fatigue [None]
  - Emotional distress [None]
  - Muscle spasms [None]
